FAERS Safety Report 5044853-5 (Version None)
Quarter: 2006Q2

REPORT INFORMATION
  Report Type: 
  Country: None (occurrence: None)
  Receive Date: 20060601
  Receipt Date: 20060307
  Transmission Date: 20061013
  Serious: No
  Sender: FDA-Public Use
  Company Number: 2006-BP-01435BP

PATIENT
  Age: 83 Year
  Sex: Female

DRUGS (10)
  1. SPIRIVA [Suspect]
     Indication: CHRONIC OBSTRUCTIVE PULMONARY DISEASE
     Dosage: 18 MCG (18 MCG),IH
     Dates: start: 20050101
  2. ADVAIR (SERETIDE /01420901/) [Concomitant]
  3. FOSAMAX [Concomitant]
  4. DILTIAZEM HCL [Concomitant]
  5. LISINOPRIL [Concomitant]
  6. CLONOPIN [Concomitant]
  7. POTASSIUM [Concomitant]
  8. PROZAC [Concomitant]
  9. ATARAX [Concomitant]
  10. FLORINEF [Concomitant]

REACTIONS (1)
  - DYSPNOEA [None]
